FAERS Safety Report 8262615-2 (Version None)
Quarter: 2012Q2

REPORT INFORMATION
  Report Type: 
  Country: None (occurrence: None)
  Receive Date: 20120405
  Receipt Date: 20120325
  Transmission Date: 20120825
  Serious: Yes (Hospitalization)
  Sender: FDA-Public Use
  Company Number: ZA-COVIDIEN/TYCO HEALTHCARE/MALLINCKRODT-T201201387

PATIENT
  Sex: Male

DRUGS (2)
  1. EXALGO [Suspect]
     Indication: PRODUCT USED FOR UNKNOWN INDICATION
     Route: 048
  2. ALL OTHER THERAPEUTIC PRODUCTS [Suspect]
     Indication: PRODUCT USED FOR UNKNOWN INDICATION

REACTIONS (3)
  - PNEUMONIA [None]
  - SOMNOLENCE [None]
  - MEDICATION ERROR [None]
